FAERS Safety Report 18330620 (Version 4)
Quarter: 2021Q2

REPORT INFORMATION
  Report Type: Spontaneous
  Country: US (occurrence: US)
  Receive Date: 20200930
  Receipt Date: 20210609
  Transmission Date: 20210717
  Serious: Yes (Death, Other)
  Sender: FDA-Public Use
  Company Number: US-PURDUE-USA-2020-0164949

PATIENT
  Age: 54 Year
  Sex: Male

DRUGS (5)
  1. OXYCONTIN [Suspect]
     Active Substance: OXYCODONE HYDROCHLORIDE
     Indication: INJURY
     Dosage: UNK
     Route: 048
     Dates: start: 2000
  2. OXYCONTIN [Suspect]
     Active Substance: OXYCODONE HYDROCHLORIDE
     Indication: PAIN
  3. OXYCODONE/ ACETAMINOPHEN TABLETS [Suspect]
     Active Substance: ACETAMINOPHEN\OXYCODONE HYDROCHLORIDE
     Indication: INJURY
     Dosage: UNK
     Route: 048
     Dates: start: 2000
  4. OXYCODONE HCL CR TABLETS (SIMILAR TO NDA 22?272) [Suspect]
     Active Substance: OXYCODONE HYDROCHLORIDE
     Indication: INJURY
     Dosage: UNK
     Route: 048
     Dates: start: 2000
  5. OXYCODONE HCL TABLETS (RHODES 91?490) [Suspect]
     Active Substance: OXYCODONE HYDROCHLORIDE
     Indication: INJURY
     Dosage: UNK
     Route: 048
     Dates: start: 2000

REACTIONS (13)
  - Overdose [Unknown]
  - Hepatorenal syndrome [Fatal]
  - Aggression [Unknown]
  - Agitation [Unknown]
  - Drug dependence [Unknown]
  - Encephalopathy [Fatal]
  - Oesophageal haemorrhage [Fatal]
  - Unevaluable event [Unknown]
  - Thinking abnormal [Unknown]
  - Shock haemorrhagic [Fatal]
  - Hepatitis alcoholic [Fatal]
  - Hepatic cirrhosis [Fatal]
  - Obesity [Unknown]

NARRATIVE: CASE EVENT DATE: 20171102
